FAERS Safety Report 12120600 (Version 1)
Quarter: 2016Q1

REPORT INFORMATION
  Report Type: Spontaneous
  Country: US (occurrence: US)
  Receive Date: 20160226
  Receipt Date: 20160226
  Transmission Date: 20160526
  Serious: No
  Sender: FDA-Public Use
  Company Number: US-ALLERGAN-1404214US

PATIENT
  Age: 89 Year
  Sex: Female

DRUGS (7)
  1. REFRESH OPTIVE [Suspect]
     Active Substance: CARBOXYMETHYLCELLULOSE SODIUM\GLYCERIN
     Dosage: 1 GTT, 4-6 TIMES DAILY
     Route: 047
     Dates: start: 20150127
  2. REFRESH OPTIVE [Suspect]
     Active Substance: CARBOXYMETHYLCELLULOSE SODIUM\GLYCERIN
     Indication: DRY EYE
     Dosage: 2 GTT, BID
     Route: 047
     Dates: start: 201402
  3. CELEBREX [Concomitant]
     Active Substance: CELECOXIB
     Indication: PAIN
     Dosage: UNK
  4. BLOOD PRESSURE MEDICATION NOS [Concomitant]
     Active Substance: UNSPECIFIED INGREDIENT
     Indication: HYPERTENSION
     Dosage: UNK
  5. REFRESH P.M. [Concomitant]
     Active Substance: MINERAL OIL\PETROLATUM
     Indication: PRODUCT USED FOR UNKNOWN INDICATION
     Dosage: UNK
  6. CHOLESTEROL MEDICATION NOS [Concomitant]
     Indication: BLOOD CHOLESTEROL INCREASED
     Dosage: UNK
  7. ERYTHROMYCIN. [Concomitant]
     Active Substance: ERYTHROMYCIN
     Indication: MICROGRAPHIC SKIN SURGERY
     Dosage: UNK
     Route: 061
     Dates: start: 20150202, end: 20150208

REACTIONS (4)
  - Eye irritation [Not Recovered/Not Resolved]
  - Vision blurred [Unknown]
  - Eye irritation [Unknown]
  - Abnormal sensation in eye [Not Recovered/Not Resolved]
